FAERS Safety Report 8124350-0 (Version None)
Quarter: 2012Q1

REPORT INFORMATION
  Report Type: 
  Country: None (occurrence: None)
  Receive Date: 20120209
  Receipt Date: 20120131
  Transmission Date: 20120608
  Serious: Yes (Other)
  Sender: FDA-Public Use
  Company Number: BE-ELI_LILLY_AND_COMPANY-BE201202000099

PATIENT
  Sex: Male

DRUGS (9)
  1. ASPIRIN [Concomitant]
  2. ELTHYRONE [Concomitant]
  3. TRAZODONE HCL [Concomitant]
     Dosage: 100 MG, UNK
  4. HALDOL [Concomitant]
     Dosage: UNK, PRN
  5. CEFUROXIME [Concomitant]
     Dosage: 500 MG, TID
     Route: 048
  6. ZYPREXA [Suspect]
     Indication: CONFUSIONAL STATE
     Dosage: 5 MG, QD
     Route: 048
  7. PANTOMED                           /01263204/ [Concomitant]
     Dosage: 20 MG, UNK
  8. DEXTROMETORFAN [Concomitant]
  9. LORAMET [Concomitant]
     Dosage: 2 MG, UNK

REACTIONS (4)
  - NORMOCHROMIC NORMOCYTIC ANAEMIA [None]
  - EPISTAXIS [None]
  - OFF LABEL USE [None]
  - DYSPHAGIA [None]
